FAERS Safety Report 17127291 (Version 1)
Quarter: 2019Q4

REPORT INFORMATION
  Report Type: Report from Study
  Country: IT (occurrence: IT)
  Receive Date: 20191209
  Receipt Date: 20191209
  Transmission Date: 20200122
  Serious: Yes (Other)
  Sender: FDA-Public Use
  Company Number: IT-TEVA-2019-IT-1077358

PATIENT
  Age: 54 Year
  Sex: Female

DRUGS (2)
  1. ESCITALOPRAM OXALATE. [Suspect]
     Active Substance: ESCITALOPRAM OXALATE
     Indication: SUICIDE ATTEMPT
     Route: 048
     Dates: start: 20190621, end: 20190621
  2. DEPAKIN CHRONO 300 MG COMPRESSE A RILASCIO PROLUNGATO [Concomitant]
     Active Substance: VALPROIC ACID

REACTIONS (3)
  - Arrhythmia [Recovering/Resolving]
  - Hypotension [Recovering/Resolving]
  - Toxicity to various agents [Recovering/Resolving]

NARRATIVE: CASE EVENT DATE: 20190621
